FAERS Safety Report 15431705 (Version 3)
Quarter: 2019Q1

REPORT INFORMATION
  Report Type: Report from Study
  Country: RU (occurrence: RU)
  Receive Date: 20180926
  Receipt Date: 20190220
  Transmission Date: 20190417
  Serious: Yes (Hospitalization, Other)
  Sender: FDA-Public Use
  Company Number: RU-ASTRAZENECA-2018SE83086

PATIENT
  Age: 56 Year
  Sex: Male
  Weight: 86 kg

DRUGS (9)
  1. FUROSEMIDE. [Concomitant]
     Active Substance: FUROSEMIDE
     Indication: PULMONARY OEDEMA
  2. LOSARTAN. [Concomitant]
     Active Substance: LOSARTAN
  3. BISOPROLOL [Concomitant]
     Active Substance: BISOPROLOL
  4. ATORVASTATIN [Concomitant]
     Active Substance: ATORVASTATIN
  5. PANTOPRAZOLE [Concomitant]
     Active Substance: PANTOPRAZOLE
  6. ASPIRIN CARDIO [Concomitant]
     Active Substance: ASPIRIN
  7. BRILINTA [Suspect]
     Active Substance: TICAGRELOR
     Indication: MYOCARDIAL INFARCTION
     Route: 048
     Dates: start: 201801, end: 20190211
  8. INDAP [Concomitant]
  9. ESPIRO [Concomitant]

REACTIONS (7)
  - Cholecystitis [Recovered/Resolved]
  - Chest pain [Not Recovered/Not Resolved]
  - Angina pectoris [Recovering/Resolving]
  - Arrhythmia [Recovering/Resolving]
  - Myocardial infarction [Recovered/Resolved]
  - Nasopharyngitis [Not Recovered/Not Resolved]
  - Pulmonary oedema [Unknown]

NARRATIVE: CASE EVENT DATE: 201802
